FAERS Safety Report 19716022 (Version 1)
Quarter: 2021Q3

REPORT INFORMATION
  Report Type: Spontaneous
  Country: JP (occurrence: JP)
  Receive Date: 20210818
  Receipt Date: 20210818
  Transmission Date: 20211014
  Serious: Yes (Other)
  Sender: FDA-Public Use
  Company Number: JP-MYLANLABS-2021M1052752

PATIENT
  Age: 69 Year
  Sex: Male
  Weight: 49.6 kg

DRUGS (5)
  1. LORLATINIB [Suspect]
     Active Substance: LORLATINIB
     Indication: LUNG NEOPLASM MALIGNANT
     Dosage: 100 MILLIGRAM, QD
     Route: 048
     Dates: start: 20200122, end: 20200214
  2. LORLATINIB [Suspect]
     Active Substance: LORLATINIB
     Dosage: 50 MILLIGRAM, QD
     Route: 048
     Dates: start: 20200309, end: 20200325
  3. LORLATINIB [Suspect]
     Active Substance: LORLATINIB
     Dosage: 50 MILLIGRAM, QD
     Route: 048
     Dates: start: 20200219, end: 20200226
  4. PITAVASTATIN. [Suspect]
     Active Substance: PITAVASTATIN CALCIUM
     Indication: HYPERCHOLESTEROLAEMIA
     Dosage: 2 MILLIGRAM
     Route: 065
     Dates: start: 20200130
  5. PITAVASTATIN. [Suspect]
     Active Substance: PITAVASTATIN CALCIUM
     Indication: HYPERTRIGLYCERIDAEMIA
     Dosage: UNK
     Route: 065
     Dates: start: 20200127, end: 20200226

REACTIONS (6)
  - Nephrotic syndrome [Recovered/Resolved]
  - Nightmare [Recovering/Resolving]
  - Feeling abnormal [Unknown]
  - Dizziness [Unknown]
  - Renal impairment [Recovering/Resolving]
  - Amylase increased [Recovered/Resolved]

NARRATIVE: CASE EVENT DATE: 20200205
